FAERS Safety Report 6488006-2 (Version None)
Quarter: 2009Q4

REPORT INFORMATION
  Report Type: 
  Country: None (occurrence: None)
  Receive Date: 20091210
  Receipt Date: 20091201
  Transmission Date: 20100525
  Serious: Yes (Other)
  Sender: FDA-Public Use
  Company Number: PHHY2009JP47553

PATIENT
  Sex: Female
  Weight: 43 kg

DRUGS (2)
  1. ZOMETA [Suspect]
     Indication: METASTASES TO BONE
     Dosage: 4 MG, QMO
     Route: 042
     Dates: start: 20060101, end: 20081201
  2. ARIMIDEX [Concomitant]

REACTIONS (5)
  - FISTULA [None]
  - GINGIVAL PAIN [None]
  - MASS [None]
  - OSTEOMYELITIS [None]
  - SWELLING [None]
